FAERS Safety Report 7493919-9 (Version None)
Quarter: 2011Q2

REPORT INFORMATION
  Report Type: 
  Country: None (occurrence: None)
  Receive Date: 20110519
  Receipt Date: 20110519
  Transmission Date: 20111010
  Serious: Yes (Other)
  Sender: FDA-Public Use
  Company Number: None

PATIENT
  Sex: Male
  Weight: 78.0187 kg

DRUGS (1)
  1. HUMALOG [Suspect]
     Indication: TYPE 1 DIABETES MELLITUS
     Dosage: 1 PER 20 CARBS IM
     Route: 030
     Dates: start: 20110507, end: 20110517

REACTIONS (2)
  - PRODUCT COLOUR ISSUE [None]
  - INCORRECT DOSE ADMINISTERED [None]
